FAERS Safety Report 5475098-2 (Version None)
Quarter: 2007Q4

REPORT INFORMATION
  Report Type: 
  Country: None (occurrence: None)
  Receive Date: 20071002
  Receipt Date: 20070904
  Transmission Date: 20080405
  Serious: Yes (Other)
  Sender: FDA-Public Use
  Company Number: US-PFIZER INC-2007066444

PATIENT
  Sex: Female
  Weight: 63.181 kg

DRUGS (9)
  1. LYRICA [Suspect]
     Indication: NEUROPATHY PERIPHERAL
  2. LYRICA [Suspect]
     Indication: NEURALGIA
  3. CLONAZEPAM [Concomitant]
  4. TIZANIDINE HCL [Concomitant]
  5. ESTRADIOL [Concomitant]
  6. LEVOTHROID [Concomitant]
  7. TEMAZEPAM [Concomitant]
  8. VALIUM [Concomitant]
  9. ZANAFLEX [Concomitant]

REACTIONS (2)
  - ABASIA [None]
  - BALANCE DISORDER [None]
